FAERS Safety Report 7313690-0 (Version None)
Quarter: 2011Q1

REPORT INFORMATION
  Report Type: 
  Country: None (occurrence: None)
  Receive Date: 20110225
  Receipt Date: 20110214
  Transmission Date: 20110831
  Serious: Yes (Hospitalization)
  Sender: FDA-Public Use
  Company Number: NO-ELI_LILLY_AND_COMPANY-NO201012004310

PATIENT
  Sex: Male

DRUGS (6)
  1. ZYPADHERA [Suspect]
     Indication: SCHIZOPHRENIA
     Dosage: 210 MG, EVERY TWO WEEKS
     Route: 030
     Dates: start: 20090623
  2. RITALIN [Concomitant]
     Indication: ATTENTION DEFICIT/HYPERACTIVITY DISORDER
     Dosage: 110 MG, UNK
  3. BENZO [Concomitant]
  4. LEPONEX [Concomitant]
     Dosage: UNK, UNK
  5. RITALIN [Concomitant]
     Dosage: 40 MG, 3/D
  6. ABILIFY [Concomitant]
     Dosage: 10 MG, UNK

REACTIONS (2)
  - FEAR [None]
  - PSYCHOTIC DISORDER [None]
